FAERS Safety Report 9805196 (Version 1)
Quarter: 2014Q1

REPORT INFORMATION
  Report Type: Spontaneous
  Country: IN (occurrence: IN)
  Receive Date: 20140109
  Receipt Date: 20140109
  Transmission Date: 20141002
  Serious: Yes (Hospitalization)
  Sender: FDA-Public Use
  Company Number: IN-SUN PHARMACEUTICAL INDUSTRIES LTD-2014SUN00002

PATIENT
  Age: 56 Year
  Sex: Male

DRUGS (3)
  1. LEVETIRACETAM INJECTION 500MG/5ML [Suspect]
     Indication: STATUS EPILEPTICUS
     Dosage: 25 MG/KG, LOADING DOSE
     Route: 042
  2. LEVETIRACETAM TABLETS, 750 MG [Suspect]
     Indication: STATUS EPILEPTICUS
     Dosage: 1.5 G, QD
     Route: 048
  3. OXCARBAZEPINE [Concomitant]
     Dosage: 450 MG, BID
     Route: 065

REACTIONS (1)
  - Encephalopathy [Recovered/Resolved]
